FAERS Safety Report 15954237 (Version 1)
Quarter: 2019Q1

REPORT INFORMATION
  Report Type: Spontaneous
  Country: US (occurrence: US)
  Receive Date: 20190213
  Receipt Date: 20190213
  Transmission Date: 20190417
  Serious: Yes (Other)
  Sender: FDA-Public Use
  Company Number: US-RECKITT BENCKISER HEALTHCARE INT LIMITED-RB-81531-2019

PATIENT
  Sex: Female

DRUGS (2)
  1. MUCINEX DM MAXIMUM STRENGTH [Suspect]
     Active Substance: DEXTROMETHORPHAN HYDROBROMIDE\GUAIFENESIN
     Dosage: 1200 MILLIGRAM, QD ( TOOK AFTER 2 DAYS OF STATRTED TAKING).
     Route: 065
     Dates: start: 201901
  2. MUCINEX DM MAXIMUM STRENGTH [Suspect]
     Active Substance: DEXTROMETHORPHAN HYDROBROMIDE\GUAIFENESIN
     Indication: NASOPHARYNGITIS
     Dosage: 1200 MILLIGRAM, BID (FOR THE FIRST 2 DAYS)
     Route: 065
     Dates: start: 201901

REACTIONS (3)
  - Apnoea [Recovered/Resolved]
  - Dyspnoea [Recovered/Resolved]
  - Chest discomfort [Recovered/Resolved]

NARRATIVE: CASE EVENT DATE: 201901
